FAERS Safety Report 7850830-9 (Version None)
Quarter: 2011Q4

REPORT INFORMATION
  Report Type: 
  Country: None (occurrence: None)
  Receive Date: 20111026
  Receipt Date: 20111013
  Transmission Date: 20120403
  Serious: Yes (Other)
  Sender: FDA-Public Use
  Company Number: US-US-EMD SERONO, INC.-7089667

PATIENT
  Sex: Female
  Weight: 41 kg

DRUGS (1)
  1. REBIF [Suspect]
     Indication: MULTIPLE SCLEROSIS
     Route: 058
     Dates: start: 20061003

REACTIONS (7)
  - JOINT DISLOCATION [None]
  - FALL [None]
  - NAUSEA [None]
  - DECREASED APPETITE [None]
  - CONTUSION [None]
  - WEIGHT DECREASED [None]
  - MULTIPLE SCLEROSIS [None]
